FAERS Safety Report 21251314 (Version 2)
Quarter: 2022Q3

REPORT INFORMATION
  Report Type: Report from Study
  Country: NL (occurrence: NL)
  Receive Date: 20220825
  Receipt Date: 20220928
  Transmission Date: 20221027
  Serious: Yes (Other)
  Sender: FDA-Public Use
  Company Number: NL-SUN PHARMACEUTICAL INDUSTRIES LTD-2022RR-351666

PATIENT
  Age: 26 Year
  Sex: Male

DRUGS (2)
  1. PREGABALIN [Suspect]
     Active Substance: PREGABALIN
     Indication: Product used for unknown indication
     Dosage: 1200 MILLIGRAM, UNK
     Route: 065
  2. PREGABALIN [Suspect]
     Active Substance: PREGABALIN
     Dosage: 16.0 MILLIGRAM/KILOGRAM, UNK
     Route: 065

REACTIONS (4)
  - Intentional overdose [Unknown]
  - Somnolence [Unknown]
  - Confusional state [Unknown]
  - Apathy [Unknown]
